FAERS Safety Report 4987947-2 (Version None)
Quarter: 2006Q2

REPORT INFORMATION
  Report Type: 
  Country: None (occurrence: None)
  Receive Date: 20060501
  Receipt Date: 20030123
  Transmission Date: 20061013
  Serious: No
  Sender: FDA-Public Use
  Company Number: CA-BOEHRINGER INGELHEIM PHARMACEUTICALS, INC.-2003-CN-00024CN

PATIENT
  Sex: Female

DRUGS (1)
  1. COMBIVENT [Suspect]
     Route: 055

REACTIONS (4)
  - CARDIAC FAILURE [None]
  - DYSPNOEA [None]
  - FAILURE OF IMPLANT [None]
  - OEDEMA [None]
